FAERS Safety Report 6868057-6 (Version None)
Quarter: 2010Q3

REPORT INFORMATION
  Report Type: 
  Country: None (occurrence: None)
  Receive Date: 20100722
  Receipt Date: 20080528
  Transmission Date: 20110219
  Serious: No
  Sender: FDA-Public Use
  Company Number: US-PFIZER INC-2008039669

PATIENT
  Sex: Male

DRUGS (2)
  1. CHANTIX [Suspect]
  2. NICOTINE [Concomitant]

REACTIONS (4)
  - DIZZINESS [None]
  - FLATULENCE [None]
  - FREQUENT BOWEL MOVEMENTS [None]
  - GASTRIC DISORDER [None]
